FAERS Safety Report 9035057 (Version 1)
Quarter: 2013Q1

REPORT INFORMATION
  Report Type: Report from Study
  Country: US (occurrence: US)
  Receive Date: 20130129
  Receipt Date: 20130129
  Transmission Date: 20140127
  Serious: No
  Sender: FDA-Public Use
  Company Number: US-ABBOTT-12P-163-0889130-00

PATIENT
  Age: 49 Year
  Sex: Male

DRUGS (8)
  1. HUMIRA 40 MG/ 0.8 ML PRE-FILLED SYRINGE [Suspect]
     Indication: PSORIATIC ARTHROPATHY
     Dates: start: 201012
  2. NORVASC [Concomitant]
     Indication: BLOOD PRESSURE
     Dosage: DAILY
     Route: 048
  3. COZAAR [Concomitant]
     Indication: BLOOD PRESSURE
     Dosage: DAILY
     Route: 048
  4. FIORICET [Concomitant]
     Indication: HEADACHE
  5. DIPLIMEN [Concomitant]
     Indication: PSORIASIS
  6. DIPLIMEN [Concomitant]
  7. FLONASE [Concomitant]
     Indication: HYPERSENSITIVITY
     Route: 045
  8. NEXIUM [Concomitant]
     Indication: PRODUCT USED FOR UNKNOWN INDICATION
     Route: 048

REACTIONS (2)
  - Dysuria [Not Recovered/Not Resolved]
  - Nocturia [Not Recovered/Not Resolved]
